FAERS Safety Report 6197708-7 (Version None)
Quarter: 2009Q2

REPORT INFORMATION
  Report Type: 
  Country: None (occurrence: None)
  Receive Date: 20090521
  Receipt Date: 20090414
  Transmission Date: 20091009
  Serious: Yes (Other)
  Sender: FDA-Public Use
  Company Number: US-PFIZER INC-2009160768

PATIENT
  Sex: Female

DRUGS (3)
  1. DEPO-MEDROL [Suspect]
     Indication: EPICONDYLITIS
     Dosage: 2CC
     Dates: start: 20061208
  2. XYLOCAINE [Suspect]
     Indication: EPICONDYLITIS
     Dosage: 2CC
     Dates: start: 20061208
  3. MARCAINE [Suspect]
     Indication: EPICONDYLITIS
     Dosage: 1CC
     Dates: start: 20061208

REACTIONS (1)
  - OSTEOMYELITIS [None]
